FAERS Safety Report 8309906-4 (Version None)
Quarter: 2012Q2

REPORT INFORMATION
  Report Type: 
  Country: None (occurrence: None)
  Receive Date: 20120425
  Receipt Date: 20120418
  Transmission Date: 20120825
  Serious: Yes (Other)
  Sender: FDA-Public Use
  Company Number: BR-PFIZER INC-2012097358

PATIENT
  Age: 66 Year
  Sex: Male

DRUGS (4)
  1. CARBAMAZEPINE [Concomitant]
     Dosage: UNK
     Dates: start: 20040101
  2. TOLTERODINE TARTRATE [Suspect]
     Indication: URINARY INCONTINENCE
     Dosage: 1 TABLET OF 4 MG
     Route: 048
     Dates: start: 20080808, end: 20090101
  3. UNOPROST [Concomitant]
     Dosage: UNK
     Dates: start: 20080101
  4. PHENOBARBITAL TAB [Concomitant]
     Dosage: UNK
     Dates: start: 20040101

REACTIONS (2)
  - CARDIAC DISORDER [None]
  - MALAISE [None]
